FAERS Safety Report 5821628-8 (Version None)
Quarter: 2008Q3

REPORT INFORMATION
  Report Type: 
  Country: None (occurrence: None)
  Receive Date: 20080714
  Receipt Date: 20070813
  Transmission Date: 20090109
  Serious: Yes (Hospitalization)
  Sender: FDA-Public Use
  Company Number: 511722

PATIENT
  Age: 58 Year
  Sex: Female

DRUGS (3)
  1. BONIVA [Suspect]
     Indication: DRUG USE FOR UNKNOWN INDICATION
     Dosage: 150 MG
  2. DAYPRO [Concomitant]
  3. UNSPECIFIED DRUG (GENERIC UNKNOWN) [Concomitant]

REACTIONS (3)
  - CANDIDIASIS [None]
  - PYREXIA [None]
  - RASH GENERALISED [None]
